FAERS Safety Report 4893278-1 (Version None)
Quarter: 2006Q1

REPORT INFORMATION
  Report Type: 
  Country: None (occurrence: None)
  Receive Date: 20060124
  Receipt Date: 20060116
  Transmission Date: 20060701
  Serious: Yes (Hospitalization)
  Sender: FDA-Public Use
  Company Number: 200510640BFR

PATIENT
  Age: 61 Year
  Sex: Male
  Weight: 52 kg

DRUGS (2)
  1. CIPROFLOXACIN [Suspect]
     Indication: LUNG DISORDER
     Dosage: 500 MG, BID, ORAL
     Route: 048
     Dates: start: 20050427, end: 20050428
  2. VISIPAQUE [Suspect]
     Indication: SCAN
     Dosage: INTRAVENOUS
     Route: 042
     Dates: start: 20050429

REACTIONS (2)
  - HAEMODIALYSIS [None]
  - RENAL TUBULAR NECROSIS [None]
